FAERS Safety Report 4921699-7 (Version None)
Quarter: 2006Q1

REPORT INFORMATION
  Report Type: 
  Country: None (occurrence: None)
  Receive Date: 20060224
  Receipt Date: 20050511
  Transmission Date: 20060701
  Serious: No
  Sender: FDA-Public Use
  Company Number: US-BRISTOL-MYERS SQUIBB COMPANY-12963302

PATIENT
  Age: 42 Year
  Sex: Female

DRUGS (2)
  1. VAGISTAT-1 [Suspect]
     Indication: GENITAL PRURITUS FEMALE
     Dates: start: 20050510, end: 20050510
  2. VAGISTAT-1 [Suspect]
     Indication: VAGINAL BURNING SENSATION
     Dates: start: 20050510, end: 20050510

REACTIONS (2)
  - GENITAL PRURITUS FEMALE [None]
  - VAGINAL BURNING SENSATION [None]
